FAERS Safety Report 23944086 (Version 2)
Quarter: 2024Q3

REPORT INFORMATION
  Report Type: Spontaneous
  Country: GB (occurrence: GB)
  Receive Date: 20240606
  Receipt Date: 20240731
  Transmission Date: 20241016
  Serious: Yes (Hospitalization)
  Sender: ROCHE
  Company Number: GB-002147023-NVSC2024GB110454

PATIENT
  Sex: Female

DRUGS (4)
  1. XOLAIR [Suspect]
     Active Substance: OMALIZUMAB
     Indication: Chronic spontaneous urticaria
     Route: 065
  2. XOLAIR [Suspect]
     Active Substance: OMALIZUMAB
     Route: 065
  3. NEORAL [Suspect]
     Active Substance: CYCLOSPORINE
     Indication: Product used for unknown indication
     Dosage: UNK
     Route: 065
  4. NEORAL [Suspect]
     Active Substance: CYCLOSPORINE
     Route: 065

REACTIONS (7)
  - Angioedema [Unknown]
  - Quality of life decreased [Unknown]
  - Mobility decreased [Unknown]
  - Diarrhoea [Unknown]
  - Therapy partial responder [Unknown]
  - Therapy non-responder [Unknown]
  - Drug ineffective [Unknown]
